FAERS Safety Report 4324412-X (Version None)
Quarter: 2004Q1

REPORT INFORMATION
  Report Type: 
  Country: None (occurrence: None)
  Receive Date: 20040326
  Receipt Date: 20040202
  Transmission Date: 20041129
  Serious: Yes (Hospitalization)
  Sender: FDA-Public Use
  Company Number: US-GLAXOSMITHKLINE-A0497424A

PATIENT
  Age: 69 Year
  Sex: Male
  Weight: 77.3 kg

DRUGS (1)
  1. ADVAIR DISKUS 100/50 [Suspect]
     Route: 055
     Dates: start: 20030701

REACTIONS (1)
  - PNEUMONIA FUNGAL [None]
